FAERS Safety Report 17875733 (Version 1)
Quarter: 2020Q2

REPORT INFORMATION
  Report Type: Report from Study
  Country: IT (occurrence: IT)
  Receive Date: 20200609
  Receipt Date: 20200609
  Transmission Date: 20200714
  Serious: Yes (Death)
  Sender: FDA-Public Use
  Company Number: IT-ROCHE-2616328

PATIENT

DRUGS (4)
  1. PROPOFOL. [Concomitant]
     Active Substance: PROPOFOL
  2. LASIX [Concomitant]
     Active Substance: FUROSEMIDE
  3. FENTANEST [FENTANYL] [Concomitant]
  4. TOCILIZUMAB. [Suspect]
     Active Substance: TOCILIZUMAB
     Indication: COVID-19 PNEUMONIA
     Dosage: LAST TOCILIZUMAB ADMINISTRATION DATE WAS 10/APR/2020.
     Route: 042

REACTIONS (1)
  - Large intestine perforation [Fatal]

NARRATIVE: CASE EVENT DATE: 20200416
